FAERS Safety Report 10400285 (Version 1)
Quarter: 2014Q3

REPORT INFORMATION
  Report Type: Spontaneous
  Country: US (occurrence: US)
  Receive Date: 20140821
  Receipt Date: 20140821
  Transmission Date: 20150326
  Serious: Yes (Other)
  Sender: FDA-Public Use
  Company Number: US-PFIZER INC-2014231648

PATIENT

DRUGS (5)
  1. CALCIUM D3 [Suspect]
     Active Substance: CALCIUM\CHOLECALCIFEROL
     Dosage: EVERYDAY
  2. FOLIC ACID. [Suspect]
     Active Substance: FOLIC ACID
     Dosage: EVERYDAY BESIDES THE DAY BEFORE AND AFTER METHOTREXATE
  3. METHOTREXATE [Suspect]
     Active Substance: METHOTREXATE
     Dosage: 15MG AT TIMES 20 MG EVERY WEEK
  4. CIMZIA [Suspect]
     Active Substance: CERTOLIZUMAB PEGOL
     Dosage: 200 MG EVERY 15 DAYS
  5. CELEBREX [Suspect]
     Active Substance: CELECOXIB
     Dosage: BEFORE SLEEP IF NECESSARY

REACTIONS (12)
  - Arthralgia [Unknown]
  - Disturbance in attention [Unknown]
  - Sjogren^s syndrome [Unknown]
  - Pruritus [Unknown]
  - Dry skin [Unknown]
  - Fatigue [Unknown]
  - Snoring [Unknown]
  - Oropharyngeal pain [Unknown]
  - External ear disorder [Unknown]
  - Apnoea [Unknown]
  - Dry mouth [Unknown]
  - Insomnia [Unknown]
